FAERS Safety Report 24058005 (Version 4)
Quarter: 2024Q3

REPORT INFORMATION
  Report Type: Spontaneous
  Country: ES (occurrence: ES)
  Receive Date: 20240707
  Receipt Date: 20240712
  Transmission Date: 20241016
  Serious: Yes (Other)
  Sender: MERCK
  Company Number: ES-009507513-2407ESP002043

PATIENT
  Sex: Female

DRUGS (1)
  1. KEYTRUDA [Suspect]
     Active Substance: PEMBROLIZUMAB
     Indication: Triple negative breast cancer
     Dosage: UNK

REACTIONS (3)
  - Renal failure [Unknown]
  - Hyperthyroidism [Unknown]
  - Multiple sclerosis [Unknown]
